FAERS Safety Report 4632188-1 (Version None)
Quarter: 2005Q2

REPORT INFORMATION
  Report Type: 
  Country: None (occurrence: None)
  Receive Date: 20050331
  Receipt Date: 20040804
  Transmission Date: 20051028
  Serious: Yes (Other)
  Sender: FDA-Public Use
  Company Number: 200413846BCC

PATIENT
  Age: 46 Year
  Sex: Male
  Weight: 106.5953 kg

DRUGS (3)
  1. ALEVE [Suspect]
     Indication: BURSITIS
     Dosage: 440 MG QD ORAL
     Route: 048
     Dates: start: 20040601, end: 20040803
  2. ALEVE [Suspect]
     Indication: JOINT SWELLING
     Dosage: 440 MG QD ORAL
     Route: 048
     Dates: start: 20040601, end: 20040803
  3. MULTI-VITAMINS [Concomitant]

REACTIONS (1)
  - HAEMATOCHEZIA [None]
